FAERS Safety Report 17479352 (Version 1)
Quarter: 2020Q1

REPORT INFORMATION
  Report Type: Spontaneous
  Country: CN (occurrence: CN)
  Receive Date: 20200228
  Receipt Date: 20200228
  Transmission Date: 20200409
  Serious: Yes (Hospitalization)
  Sender: FDA-Public Use
  Company Number: CN-ELI_LILLY_AND_COMPANY-CN202002009337

PATIENT
  Age: 60 Year
  Sex: Male

DRUGS (2)
  1. HUMULIN 70/30 [Suspect]
     Active Substance: INSULIN HUMAN
     Dosage: 10 INTERNATIONAL UNIT, EACH EVENING (EACH NIGHT)
     Route: 058
     Dates: start: 2009
  2. HUMULIN 70/30 [Suspect]
     Active Substance: INSULIN HUMAN
     Indication: DIABETES MELLITUS
     Dosage: 8 INTERNATIONAL UNIT, EACH MORNING
     Route: 058
     Dates: start: 2009

REACTIONS (1)
  - Blood glucose abnormal [Unknown]
